FAERS Safety Report 4490888-0 (Version None)
Quarter: 2004Q4

REPORT INFORMATION
  Report Type: 
  Country: None (occurrence: None)
  Receive Date: 20041102
  Receipt Date: 20041101
  Transmission Date: 20050328
  Serious: Yes (Hospitalization)
  Sender: FDA-Public Use
  Company Number: PHBS2004NZ14512

PATIENT
  Age: 39 Year
  Sex: Female

DRUGS (3)
  1. CLOZARIL [Suspect]
     Indication: SCHIZOPHRENIA
     Route: 048
     Dates: start: 20041018
  2. HALOPERIDOL - SLOW RELEASE [Concomitant]
     Dosage: 150 MG, BIW
     Route: 065
  3. PROCYCLIDINE HYDROCHLORIDE 2MG TAB [Concomitant]
     Dosage: 5 MG, TID, PRN
     Route: 065

REACTIONS (9)
  - BLOOD GLUCOSE INCREASED [None]
  - C-REACTIVE PROTEIN INCREASED [None]
  - DIZZINESS [None]
  - LYMPHOCYTE COUNT DECREASED [None]
  - MALAISE [None]
  - NEUTROPHILIA [None]
  - ORTHOSTATIC HYPOTENSION [None]
  - PALLOR [None]
  - PYREXIA [None]
